FAERS Safety Report 5356540-4 (Version None)
Quarter: 2007Q2

REPORT INFORMATION
  Report Type: 
  Country: None (occurrence: None)
  Receive Date: 20070529
  Receipt Date: 20070306
  Transmission Date: 20071010
  Serious: Yes (Other)
  Sender: FDA-Public Use
  Company Number: 2007014578

PATIENT
  Sex: Male

DRUGS (2)
  1. EXUBERA [Suspect]
     Indication: DIABETES MELLITUS
     Dosage: 3 MG (1 MG, 3 IN 1 D), INHALATION
     Route: 055
     Dates: start: 20070218
  2. EXUBERA [Suspect]

REACTIONS (4)
  - BLOOD GLUCOSE [None]
  - CHEST DISCOMFORT [None]
  - DEPRESSION [None]
  - DRUG INEFFECTIVE [None]
